FAERS Safety Report 10047215 (Version 3)
Quarter: 2014Q4

REPORT INFORMATION
  Report Type: Spontaneous
  Country: US (occurrence: US)
  Receive Date: 20140331
  Receipt Date: 20141124
  Transmission Date: 20150528
  Serious: Yes (Hospitalization)
  Sender: FDA-Public Use
  Company Number: US-BAYER-2014-048067

PATIENT
  Age: 22 Year
  Sex: Female
  Weight: 44 kg

DRUGS (1)
  1. MIRENA [Suspect]
     Active Substance: LEVONORGESTREL
     Indication: CONTRACEPTION
     Dosage: 20 MCG/24HR, CONT
     Route: 015
     Dates: start: 201210, end: 20130218

REACTIONS (8)
  - Pelvic pain [None]
  - Pain [None]
  - Injury [None]
  - Activities of daily living impaired [None]
  - Menorrhagia [None]
  - Uterine perforation [None]
  - Abdominal pain [None]
  - Myalgia [None]

NARRATIVE: CASE EVENT DATE: 201211
